FAERS Safety Report 4545473-9 (Version None)
Quarter: 2004Q4

REPORT INFORMATION
  Report Type: 
  Country: None (occurrence: None)
  Receive Date: 20041223
  Receipt Date: 20041013
  Transmission Date: 20050328
  Serious: No
  Sender: FDA-Public Use
  Company Number: US-JNJFOC-20040901816

PATIENT
  Age: 31 Year
  Sex: Female
  Weight: 74.8435 kg

DRUGS (4)
  1. ORTHO EVRA [Suspect]
     Indication: CONTRACEPTION
     Dosage: 1 DOSE(S), 3 IN 4 WEEK, TRANSDERMAL
     Route: 062
     Dates: start: 20040101
  2. ZOLOFT [Concomitant]
  3. ALLEGRA-D [Concomitant]
  4. MACROBID [Concomitant]

REACTIONS (4)
  - FUNGAL INFECTION [None]
  - HERNIA REPAIR [None]
  - METRORRHAGIA [None]
  - URINARY TRACT INFECTION [None]
